FAERS Safety Report 17293554 (Version 5)
Quarter: 2021Q1

REPORT INFORMATION
  Report Type: Spontaneous
  Country: DE (occurrence: DE)
  Receive Date: 20200121
  Receipt Date: 20210218
  Transmission Date: 20210419
  Serious: Yes (Death, Hospitalization, Other)
  Sender: FDA-Public Use
  Company Number: NVSC2020DE013801

PATIENT
  Age: 55 Year
  Sex: Female

DRUGS (45)
  1. PEMETREXED DISODIUM [Suspect]
     Active Substance: PEMETREXED DISODIUM
     Indication: LUNG NEOPLASM MALIGNANT
     Dosage: UNK (FIRST?LINE THERAPY)
     Route: 065
  2. PEMETREXED DISODIUM [Suspect]
     Active Substance: PEMETREXED DISODIUM
     Dosage: 1UNK, Q3W (500 MILLIGRAM/SQ. METEREVERY 3 WEEKS ;SECOND?LINE THERAP; THIRD CYCLE)
     Route: 065
     Dates: start: 20190613, end: 20190613
  3. CARBOPLATIN. [Suspect]
     Active Substance: CARBOPLATIN
     Indication: LUNG NEOPLASM MALIGNANT
     Dosage: 1 UNK, Q3W (FIRST?LINE THERAPY; AUC5, ON DAY1, EVERY 3 WEEKS; FIRST CYCLE)
     Route: 065
     Dates: end: 20190502
  4. NINTEDANIB [Suspect]
     Active Substance: NINTEDANIB
     Dosage: 75 MG/M2, Q3W (75MG/M2, D1, EVERY 3 WEEKS; SECOND CYCLE)
     Route: 048
     Dates: start: 20191007, end: 20191007
  5. NINTEDANIB [Suspect]
     Active Substance: NINTEDANIB
     Dosage: UNK MG (100MG, TWO, TWICE DAILY ORAL FROM DAY 2 UNTIL DAY 21, EVERY 3 WEEKS; THIRD CYCLE)
     Route: 048
     Dates: start: 20191028, end: 20191028
  6. NINTEDANIB [Suspect]
     Active Substance: NINTEDANIB
     Dosage: UNK (7?9TH CYCLE)
     Route: 065
     Dates: start: 20200123, end: 20200305
  7. NINTEDANIB [Suspect]
     Active Substance: NINTEDANIB
     Dosage: UNK (10?12TH CYCLE)
     Route: 065
     Dates: start: 20200326, end: 20200507
  8. NINTEDANIB [Suspect]
     Active Substance: NINTEDANIB
     Dosage: UNK (13TH CYCLE)
     Route: 065
     Dates: start: 20200526, end: 20200526
  9. VARGATEF [Suspect]
     Active Substance: NINTEDANIB
     Dosage: 4?6TH CYCLE
     Route: 065
     Dates: start: 20191119, end: 20200102
  10. NINTEDANIB [Suspect]
     Active Substance: NINTEDANIB
     Indication: LUNG NEOPLASM MALIGNANT
     Dosage: UNK (2 CYCLES, SECOND?LINE THERAPY)
     Route: 065
     Dates: end: 20180213
  11. NINTEDANIB [Suspect]
     Active Substance: NINTEDANIB
     Dosage: UNK (SECOND?LINE THERAPY   )
     Route: 048
     Dates: start: 20190912, end: 20191007
  12. PEMETREXED DISODIUM [Suspect]
     Active Substance: PEMETREXED DISODIUM
     Indication: NON-SMALL CELL LUNG CANCER METASTATIC
     Dosage: 500 MG/M2, Q3W (500 MILLIGRAM/SQ. METEREVERY 3 WEEKS ;SECOND?LINE THERAP; FIRST CYCLE)
     Route: 065
     Dates: start: 20190502
  13. DOCETAXEL. [Suspect]
     Active Substance: DOCETAXEL
     Indication: NON-SMALL CELL LUNG CANCER METASTATIC
     Dosage: 75 MG/M2, Q3W (75 MG/M2, (FIRST CYCLE))
     Route: 065
     Dates: end: 20190912
  14. DOCETAXEL. [Suspect]
     Active Substance: DOCETAXEL
     Dosage: 75 MG/M2, Q3W (75 MG/M2, (SECOND CYCLE))
     Route: 065
     Dates: start: 20191007, end: 20191007
  15. DOCETAXEL. [Suspect]
     Active Substance: DOCETAXEL
     Dosage: 13TH CYCLE
     Route: 065
     Dates: start: 20200526, end: 20200526
  16. CARBOPLATIN. [Suspect]
     Active Substance: CARBOPLATIN
     Dosage: 1 UNK, Q3W (FIRST?LINE THERAPY; AUC5, ON DAY1, EVERY 3 WEEKS; SIXTH CYCLE)
     Route: 065
     Dates: start: 20190822, end: 20190822
  17. DOCETAXEL. [Suspect]
     Active Substance: DOCETAXEL
     Dosage: 4?6TH CYCLE
     Route: 065
     Dates: start: 20191119, end: 20200102
  18. CARBOPLATIN. [Suspect]
     Active Substance: CARBOPLATIN
     Indication: NON-SMALL CELL LUNG CANCER METASTATIC
     Dosage: 1 UNK, Q3W (FIRST?LINE THERAPY; AUC5, ON DAY1, EVERY 3 WEEKS; SECOND CYCLE)
     Route: 065
     Dates: start: 20190523, end: 20190523
  19. CARBOPLATIN. [Suspect]
     Active Substance: CARBOPLATIN
     Dosage: 1 UNK, Q3W (FIRST?LINE THERAPY; AUC5, ON DAY1, EVERY 3 WEEKS; THIRD CYCLE)
     Route: 065
     Dates: start: 20190613, end: 20190613
  20. PEMETREXED DISODIUM [Suspect]
     Active Substance: PEMETREXED DISODIUM
     Dosage: 500 MG/M2, Q3W (500 MILLIGRAM/SQ. METEREVERY 3 WEEKS ;SECOND?LINE THERAP; SECOND CYCLE)
     Route: 065
     Dates: start: 20190523, end: 20190523
  21. PEMETREXED DISODIUM [Suspect]
     Active Substance: PEMETREXED DISODIUM
     Dosage: 500 MG/M2, Q3W (500 MILLIGRAM/SQ. METEREVERY 3 WEEKS ;2 CYCLES, SECOND?LINE THERAP; FORTH CYCLE)
     Route: 065
     Dates: start: 20190704, end: 20190704
  22. DOCETAXEL. [Suspect]
     Active Substance: DOCETAXEL
     Dosage: 75 MG/M2, Q3W (THIRD CYCLE)
     Route: 065
     Dates: start: 20191028, end: 20191028
  23. PEMBROLIZUMAB. [Suspect]
     Active Substance: PEMBROLIZUMAB
     Indication: NON-SMALL CELL LUNG CANCER METASTATIC
     Dosage: 200 MILLIGRAM, EVERY 3 WEEKS; FIRST CYCLE
     Route: 065
     Dates: start: 20190502, end: 20190502
  24. PEMBROLIZUMAB. [Suspect]
     Active Substance: PEMBROLIZUMAB
     Dosage: 200 MG, Q3W (200 MILLIGRAM, EVERY 3 WEEKS; FORTH CYCLE)
     Route: 065
     Dates: start: 20190704, end: 20190704
  25. PEMBROLIZUMAB. [Suspect]
     Active Substance: PEMBROLIZUMAB
     Dosage: 200 MG, Q3W (200 MG, (SIXTH CYCLE))
     Route: 065
     Dates: start: 20190822, end: 20190822
  26. CARBOPLATIN. [Suspect]
     Active Substance: CARBOPLATIN
     Dosage: UNK, Q3W (FIRST?LINE THERAPY; AUC5, ON DAY1, EVERY 3 WEEKS; FORTH CYCLE)
     Route: 065
     Dates: start: 20190704, end: 20190704
  27. VARGATEF [Suspect]
     Active Substance: NINTEDANIB
     Dosage: 13TH CYCLE
     Route: 065
     Dates: start: 20200526, end: 20200526
  28. PEMETREXED DISODIUM [Suspect]
     Active Substance: PEMETREXED DISODIUM
     Dosage: 500 MG/M2, Q3W(500 MILLIGRAM/SQ. METEREVERY 3 WEEKS ;2 CYCLES, SECOND?LINE THERAP; FIFTH CYCLE)
     Route: 065
     Dates: start: 20190725, end: 20190725
  29. PEMETREXED DISODIUM [Suspect]
     Active Substance: PEMETREXED DISODIUM
     Dosage: 500 MG/M2, Q3W (500 MILLIGRAM/SQ. METEREVERY 3 WEEKS ;2 CYCLES, SECOND?LINE THERAP; SIXTH CYCLE)
     Route: 065
     Dates: start: 20190822, end: 20190822
  30. PEMBROLIZUMAB. [Suspect]
     Active Substance: PEMBROLIZUMAB
     Dosage: 200 MG, Q3W (200 MILLIGRAM, EVERY 3 WEEKS; SECOND CYCLE)
     Route: 065
     Dates: start: 20190523, end: 20190523
  31. PEMBROLIZUMAB. [Suspect]
     Active Substance: PEMBROLIZUMAB
     Dosage: 200 MG, Q3W (EVERY 3 WEEKS, FIFTH CYCLE)
     Route: 065
     Dates: start: 20190725, end: 20190725
  32. VARGATEF [Suspect]
     Active Substance: NINTEDANIB
     Indication: NON-SMALL CELL LUNG CANCER METASTATIC
     Dosage: 200 MG, QD, 100MG, TWO, TWICE DAILY ORAL FROM DAY 2 UNTIL DAY 21, EVERY 3 WEEKS;FIRST CYCLE
     Route: 048
     Dates: end: 20190912
  33. VARGATEF [Suspect]
     Active Substance: NINTEDANIB
     Dosage: 100MG, TWO, TWICE DAILY ORAL FROM DAY 2 UNTIL DAY 21, EVERY 3 WEEKS; THIRD CYCLE
     Route: 048
     Dates: start: 20191028, end: 20191028
  34. VARGATEF [Suspect]
     Active Substance: NINTEDANIB
     Dosage: 100MG, TWO, TWICE DAILY ORAL FROM DAY 2 UNTIL DAY 21, EVERY 3 WEEKS; SECOND CYCLE
     Route: 048
     Dates: start: 20191007, end: 20191007
  35. DOCETAXEL. [Suspect]
     Active Substance: DOCETAXEL
     Dosage: UNK (SECOND?LINE THERAPY)
     Route: 065
     Dates: start: 20190912, end: 20191007
  36. PEMBROLIZUMAB. [Suspect]
     Active Substance: PEMBROLIZUMAB
     Indication: LUNG NEOPLASM MALIGNANT
     Dosage: UNK (FIRST?LINE THERAPY)
     Route: 065
  37. PEMBROLIZUMAB. [Suspect]
     Active Substance: PEMBROLIZUMAB
     Dosage: 200 MG, Q3W (200 MILLIGRAM, EVERY 3 WEEKS; THIRD CYCLE)
     Route: 065
     Dates: start: 20190613, end: 20190613
  38. NINTEDANIB [Suspect]
     Active Substance: NINTEDANIB
     Dosage: UNK (4?6TH CYCLE)
     Route: 065
     Dates: start: 20191119, end: 20200102
  39. VARGATEF [Suspect]
     Active Substance: NINTEDANIB
     Dosage: 7?9TH CYCLE
     Route: 065
     Dates: start: 20200123, end: 20200305
  40. DOCETAXEL. [Suspect]
     Active Substance: DOCETAXEL
     Indication: LUNG NEOPLASM MALIGNANT
     Dosage: UNK (2 CYCLES, SECOND?LINE THERAPY   )
     Route: 065
     Dates: end: 20180213
  41. DOCETAXEL. [Suspect]
     Active Substance: DOCETAXEL
     Dosage: UNK (7?9TH CYCLE)
     Route: 065
     Dates: start: 20200123, end: 20200305
  42. DOCETAXEL. [Suspect]
     Active Substance: DOCETAXEL
     Dosage: UNK (10?12TH CYCLE) 60MG/M2, D1, EVERY 3 WEEKS;
     Route: 042
     Dates: start: 20200326, end: 20200507
  43. CARBOPLATIN. [Suspect]
     Active Substance: CARBOPLATIN
     Dosage: 1UNK, Q3W (FIRST?LINE THERAPY; AUC5, ON DAY1, EVERY 3 WEEKS; FIFTH CYCLE)
     Route: 065
     Dates: start: 20190725, end: 20190725
  44. NINTEDANIB [Suspect]
     Active Substance: NINTEDANIB
     Dosage: UNK (100MG, TWO, TWICE DAILY ORAL FROM DAY 2 UNTIL DAY 21, EVERY 3 WEEKS;FIRST CYCLE)
     Route: 048
     Dates: start: 20190912, end: 20190912
  45. VARGATEF [Suspect]
     Active Substance: NINTEDANIB
     Dosage: 100MG, TWO, TWICE DAILY ORAL FROM DAY 2 UNTIL DAY 21, EVERY 3 WEEKS;
     Route: 048
     Dates: start: 20200326, end: 20200507

REACTIONS (11)
  - Venous thrombosis [Recovering/Resolving]
  - Febrile neutropenia [Unknown]
  - Diarrhoea [Unknown]
  - Pneumonitis [Unknown]
  - Neuropathy peripheral [Unknown]
  - Malignant neoplasm progression [Unknown]
  - Diarrhoea [Unknown]
  - Malignant neoplasm progression [Fatal]
  - Nausea [Unknown]
  - Inappropriate schedule of product administration [Unknown]
  - Malignant neoplasm progression [Unknown]

NARRATIVE: CASE EVENT DATE: 2018
